FAERS Safety Report 19567510 (Version 2)
Quarter: 2021Q4

REPORT INFORMATION
  Report Type: Report from Study
  Country: CA (occurrence: CA)
  Receive Date: 20210714
  Receipt Date: 20211006
  Transmission Date: 20220303
  Serious: Yes (Hospitalization)
  Sender: FDA-Public Use
  Company Number: CA-OTSUKA-2021_010658

PATIENT
  Age: 64 Year
  Sex: Male

DRUGS (2)
  1. CEDAZURIDINE\DECITABINE [Suspect]
     Active Substance: CEDAZURIDINE\DECITABINE
     Indication: Myelodysplastic syndrome
     Dosage: 135 MG (35 MG DECITABINE AND 100 MG CEDAZURIDINE), QD
     Route: 048
     Dates: start: 20201214, end: 202104
  2. CEDAZURIDINE\DECITABINE [Suspect]
     Active Substance: CEDAZURIDINE\DECITABINE
     Dosage: 135 MG (35 MG DECITABINE AND 100 MG CEDAZURIDINE), QD (1-4 DAYS EVERY 28 DAY CYCLE)
     Route: 048
     Dates: start: 202105

REACTIONS (6)
  - Biopsy bone marrow [Unknown]
  - Transfusion [Unknown]
  - Abdominal pain [Unknown]
  - Infection [Unknown]
  - Platelet count decreased [Unknown]
  - Product use issue [Unknown]

NARRATIVE: CASE EVENT DATE: 20210401
